FAERS Safety Report 7384202-0 (Version None)
Quarter: 2011Q1

REPORT INFORMATION
  Report Type: 
  Country: None (occurrence: None)
  Receive Date: 20110330
  Receipt Date: 20110322
  Transmission Date: 20110831
  Serious: Yes (Hospitalization)
  Sender: FDA-Public Use
  Company Number: Z0008624A

PATIENT
  Sex: Female
  Weight: 107.2 kg

DRUGS (5)
  1. DILTIAZEM [Concomitant]
     Route: 048
     Dates: start: 20080222
  2. DIGOXIN [Concomitant]
     Indication: ATRIAL FIBRILLATION
     Dosage: 125MCG PER DAY
     Route: 048
     Dates: start: 20100618
  3. SUNITINIB [Suspect]
     Indication: RENAL CELL CARCINOMA
     Dosage: 50MG PER DAY
     Route: 048
  4. PAZOPANIB [Suspect]
     Indication: RENAL CELL CARCINOMA
     Dosage: 800MG PER DAY
     Route: 048
     Dates: start: 20101201, end: 20110208
  5. SYMBICORT [Concomitant]
     Indication: ASTHMA
     Dosage: 1PUFF TWICE PER DAY
     Route: 048
     Dates: start: 20030402

REACTIONS (1)
  - NEUTROPENIC INFECTION [None]
